FAERS Safety Report 7063329-7 (Version None)
Quarter: 2010Q4

REPORT INFORMATION
  Report Type: 
  Country: None (occurrence: None)
  Receive Date: 20101026
  Receipt Date: 20101019
  Transmission Date: 20110411
  Serious: Yes (Other)
  Sender: FDA-Public Use
  Company Number: US-MERCK-1010USA02317

PATIENT
  Age: 63 Year
  Sex: Female

DRUGS (3)
  1. COZAAR [Suspect]
     Indication: HYPERTENSION
     Route: 048
     Dates: end: 20101001
  2. COZAAR [Suspect]
     Route: 048
     Dates: start: 20101016, end: 20101001
  3. COZAAR [Suspect]
     Route: 048
     Dates: start: 20101001

REACTIONS (3)
  - BLOOD PRESSURE INADEQUATELY CONTROLLED [None]
  - INSOMNIA [None]
  - PALPITATIONS [None]
